FAERS Safety Report 12722894 (Version 1)
Quarter: 2016Q3

REPORT INFORMATION
  Report Type: Spontaneous
  Country: CN (occurrence: CN)
  Receive Date: 20160907
  Receipt Date: 20160907
  Transmission Date: 20161109
  Serious: Yes (Other)
  Sender: FDA-Public Use
  Company Number: CN-JNJFOC-20160904746

PATIENT
  Sex: Male
  Weight: 1.1 kg

DRUGS (2)
  1. IBUPROFEN. [Suspect]
     Active Substance: IBUPROFEN
     Route: 045
  2. IBUPROFEN. [Suspect]
     Active Substance: IBUPROFEN
     Indication: PATENT DUCTUS ARTERIOSUS
     Dosage: (WITH MINIMAL NASAL FEEDING OF PRETERM FORMULA AT THAT TIME)
     Route: 045

REACTIONS (4)
  - Upper gastrointestinal haemorrhage [Unknown]
  - Off label use [Unknown]
  - Drug ineffective for unapproved indication [Unknown]
  - Product use issue [Unknown]
